FAERS Safety Report 7975085-6 (Version None)
Quarter: 2011Q4

REPORT INFORMATION
  Report Type: 
  Country: None (occurrence: None)
  Receive Date: 20111213
  Receipt Date: 20111027
  Transmission Date: 20120403
  Serious: No
  Sender: FDA-Public Use
  Company Number: US-AMGEN-USASP2011055793

PATIENT
  Sex: Female

DRUGS (11)
  1. NAPROXEN SODIUM [Concomitant]
     Dosage: 550 MG, DAILY
  2. VITAMIN C                          /00008001/ [Concomitant]
     Dosage: 1000 MG, DAILY
  3. ENBREL [Suspect]
     Indication: RHEUMATOID ARTHRITIS
     Dosage: 50 MG, QWK
     Dates: start: 20110901
  4. METHOTREXATE [Concomitant]
     Dosage: 2.5 MG, QWK
  5. LEFLUNOMIDE [Concomitant]
     Dosage: 10 MG, DAILY
  6. VITAMIN D [Concomitant]
     Dosage: 1 UNK, DAILY
  7. TRIAMCINOLONE [Concomitant]
     Dosage: 0.1 %, BID
     Route: 061
  8. VITAMIN B12                        /00056201/ [Concomitant]
     Dosage: 100 MUG, DAILY
  9. FOLIC ACID [Concomitant]
     Dosage: 1 MG, DAILY
  10. ALENDRONATE SODIUM [Concomitant]
     Dosage: 70 MG, QWK
  11. LEUCOVORIN CALCIUM [Concomitant]
     Dosage: 5 MG, QWK

REACTIONS (1)
  - JOINT LOCK [None]
